FAERS Safety Report 6975892-2 (Version None)
Quarter: 2010Q3

REPORT INFORMATION
  Report Type: 
  Country: None (occurrence: None)
  Receive Date: 20100910
  Receipt Date: 20100831
  Transmission Date: 20110219
  Serious: Yes (Death)
  Sender: FDA-Public Use
  Company Number: FR-PFIZER INC-2010110568

PATIENT
  Age: 47 Year
  Sex: Male

DRUGS (10)
  1. ZYVOX [Suspect]
     Indication: LUNG DISORDER
     Dosage: UNK
     Route: 042
     Dates: start: 20100312, end: 20100318
  2. MEROPENEM [Suspect]
     Indication: LUNG DISORDER
     Dosage: UNK
     Route: 042
     Dates: start: 20100312, end: 20100318
  3. AMIKACINE ^ION^ [Suspect]
     Indication: LUNG DISORDER
     Dosage: UNK
     Route: 042
     Dates: start: 20100312, end: 20100318
  4. CICLOSPORIN [Concomitant]
     Indication: IMMUNOSUPPRESSANT DRUG THERAPY
  5. CORTICOSTEROID NOS [Concomitant]
     Indication: IMMUNOSUPPRESSANT DRUG THERAPY
  6. DOBUTAMINE [Concomitant]
  7. CORDARONE [Concomitant]
  8. CIPROFLOXACIN [Concomitant]
     Indication: LUNG DISORDER
     Dosage: UNK
     Dates: start: 20100310
  9. ROCEPHIN [Concomitant]
     Indication: LUNG DISORDER
     Dosage: UNK
     Dates: start: 20100310
  10. GENTAMICIN [Concomitant]
     Indication: LUNG DISORDER
     Dosage: UNK
     Dates: start: 20100310

REACTIONS (2)
  - PANCREATITIS ACUTE [None]
  - PANCREATITIS NECROTISING [None]
